FAERS Safety Report 20663506 (Version 1)
Quarter: 2022Q2

REPORT INFORMATION
  Report Type: Spontaneous
  Country: US (occurrence: US)
  Receive Date: 20220401
  Receipt Date: 20220401
  Transmission Date: 20220721
  Serious: No
  Sender: FDA-Public Use
  Company Number: US-drreddys-SPO/USA/22/0148322

PATIENT
  Age: 39 Year

DRUGS (1)
  1. ZENATANE [Suspect]
     Active Substance: ISOTRETINOIN
     Indication: Product used for unknown indication
     Dosage: RMA ISSUE DATE: 22 FEBRUARY 2022 08:38:13 AM, 20 JANUARY 2022 01:09:54 PM, 6 DECEMBER 2021 08:46:15

REACTIONS (1)
  - Arthralgia [Unknown]
